FAERS Safety Report 6294342-5 (Version None)
Quarter: 2009Q3

REPORT INFORMATION
  Report Type: 
  Country: None (occurrence: None)
  Receive Date: 20090803
  Receipt Date: 20090205
  Transmission Date: 20100115
  Serious: Yes (Other)
  Sender: FDA-Public Use
  Company Number: AU-PFIZER INC-2009155753

PATIENT
  Age: 55 Year

DRUGS (3)
  1. LIGNOCAINE [Suspect]
     Dates: start: 20081031
  2. LYRICA [Suspect]
  3. CELESTONE [Suspect]
     Indication: INTERVERTEBRAL DISC PROTRUSION

REACTIONS (11)
  - ANXIETY [None]
  - CHILLS [None]
  - DISORIENTATION [None]
  - GAIT DISTURBANCE [None]
  - HEARING IMPAIRED [None]
  - INJECTION SITE PAIN [None]
  - INSOMNIA [None]
  - PAIN [None]
  - SPEECH DISORDER [None]
  - TREMOR [None]
  - VISUAL ACUITY REDUCED [None]
